FAERS Safety Report 6326298-0 (Version None)
Quarter: 2009Q3

REPORT INFORMATION
  Report Type: 
  Country: None (occurrence: None)
  Receive Date: 20090820
  Receipt Date: 20090729
  Transmission Date: 20100115
  Serious: Yes (Hospitalization)
  Sender: FDA-Public Use
  Company Number: MOZO-1000101

PATIENT
  Age: 59 Year
  Sex: Male
  Weight: 32 kg

DRUGS (13)
  1. MOZOBIL [Suspect]
     Indication: HAEMATOPOIETIC STEM CELL MOBILISATION
     Dosage: 20 MG/ML, QD, SUBCUTANEOUS
     Route: 058
     Dates: start: 20081007, end: 20081008
  2. MOZOBIL [Suspect]
     Indication: HODGKIN'S DISEASE
     Dosage: 20 MG/ML, QD, SUBCUTANEOUS
     Route: 058
     Dates: start: 20081007, end: 20081008
  3. G-CSF (GRANULOCYTE COLONY STIMULATING FACTOR) [Suspect]
  4. OXYCONTIN [Concomitant]
  5. XANAX [Concomitant]
  6. PHENERGAN (PROMETHAZINE) [Concomitant]
  7. VALACYCLOVIR [Concomitant]
  8. PROMETHAZINE [Concomitant]
  9. ONDANSETRON [Concomitant]
  10. PNEUMOCOCCAL VACCINE (PNEUMOCOCCAL VACCINE) [Concomitant]
  11. INFLUENZA VACCINE (INFLUENZA VIRUS VACCINE POLYVALENT) [Concomitant]
  12. ENOXAPARIN SODIUM [Concomitant]
  13. ZOSYN [Concomitant]

REACTIONS (7)
  - DIARRHOEA [None]
  - FATIGUE [None]
  - HYPOGLYCAEMIA [None]
  - HYPOKALAEMIA [None]
  - HYPOTENSION [None]
  - NAUSEA [None]
  - VOMITING [None]
